FAERS Safety Report 9607589 (Version 5)
Quarter: 2014Q1

REPORT INFORMATION
  Report Type: Report from Study
  Country: US (occurrence: US)
  Receive Date: 20131009
  Receipt Date: 20140307
  Transmission Date: 20141002
  Serious: No
  Sender: FDA-Public Use
  Company Number: PHEH2013US017527

PATIENT
  Sex: Male

DRUGS (15)
  1. TASIGNA [Suspect]
     Indication: CHRONIC MYELOID LEUKAEMIA
     Dosage: 1 DF, BID
     Route: 048
     Dates: start: 20130705
  2. TASIGNA [Suspect]
     Dosage: 2 DF, BID
     Route: 048
  3. TASIGNA [Suspect]
     Dosage: 150 MG, BID
     Route: 048
  4. FUROSEMIDE [Concomitant]
  5. NITROSTAT [Concomitant]
  6. NIFEDICAL [Concomitant]
  7. LISINOPRIL HCTZ [Concomitant]
  8. TOPROL XL [Concomitant]
  9. ALLOPURINOL [Concomitant]
  10. HYDROXYZINE HCL [Concomitant]
  11. TYLENOL [Concomitant]
  12. ACTOS [Concomitant]
  13. METOCLOPRAMIDE [Concomitant]
  14. OMEPRAZOLE [Concomitant]
  15. VYTORIN [Concomitant]

REACTIONS (12)
  - Memory impairment [Unknown]
  - Gait disturbance [Unknown]
  - Irritability [Unknown]
  - Aggression [Unknown]
  - Pruritus [Unknown]
  - Fatigue [Unknown]
  - Increased appetite [Unknown]
  - Drug ineffective [Unknown]
  - Diarrhoea [Unknown]
  - Dyspnoea [Unknown]
  - Somnolence [Unknown]
  - Malaise [Unknown]
